FAERS Safety Report 11045483 (Version 1)
Quarter: 2015Q2

REPORT INFORMATION
  Report Type: Spontaneous
  Country: GB (occurrence: GB)
  Receive Date: 20150417
  Receipt Date: 20150417
  Transmission Date: 20150821
  Serious: Yes (Other)
  Sender: FDA-Public Use
  Company Number: PHHY2015GB042475

PATIENT
  Age: 37 Year
  Sex: Male

DRUGS (4)
  1. PREDNISOLONE. [Concomitant]
     Active Substance: PREDNISOLONE
     Indication: INFECTION
     Route: 065
     Dates: start: 20150302
  2. DIFFLAM [Concomitant]
     Active Substance: BENZYDAMINE HYDROCHLORIDE
     Indication: INFECTION
     Route: 065
     Dates: start: 20150302
  3. PENICILLIN V [Concomitant]
     Active Substance: PENICILLIN V
     Indication: INFECTION
     Route: 065
     Dates: start: 20150302
  4. AMOXICILLIN. [Suspect]
     Active Substance: AMOXICILLIN
     Indication: OTITIS MEDIA ACUTE
     Dosage: 500 MG, TID
     Route: 048
     Dates: start: 20150306, end: 20150311

REACTIONS (2)
  - Swollen tongue [Recovered/Resolved]
  - Mouth swelling [Recovered/Resolved]

NARRATIVE: CASE EVENT DATE: 20150311
